FAERS Safety Report 8266501-3 (Version None)
Quarter: 2012Q2

REPORT INFORMATION
  Report Type: 
  Country: None (occurrence: None)
  Receive Date: 20120406
  Receipt Date: 20120330
  Transmission Date: 20120825
  Serious: Yes (Other)
  Sender: FDA-Public Use
  Company Number: US-ASTRAZENECA-2012SE06186

PATIENT
  Age: 39 Year
  Sex: Male

DRUGS (2)
  1. OMEPRAZOLE [Suspect]
     Route: 048
  2. NEXIUM [Suspect]
     Route: 048
     Dates: start: 20010101

REACTIONS (8)
  - INTENTIONAL DRUG MISUSE [None]
  - MALAISE [None]
  - ADVERSE EVENT [None]
  - PERIPHERAL MOTOR NEUROPATHY [None]
  - ANGINA PECTORIS [None]
  - DRUG INEFFECTIVE [None]
  - GAIT DISTURBANCE [None]
  - MUSCULAR DYSTROPHY [None]
